FAERS Safety Report 17237670 (Version 1)
Quarter: 2020Q1

REPORT INFORMATION
  Report Type: Spontaneous
  Country: FR (occurrence: FR)
  Receive Date: 20200106
  Receipt Date: 20200106
  Transmission Date: 20200409
  Serious: Yes (Hospitalization)
  Sender: FDA-Public Use
  Company Number: FR-MYLANLABS-2020M1001200

PATIENT
  Age: 19 Year
  Sex: Male
  Weight: 80 kg

DRUGS (4)
  1. KIDROLASE [Suspect]
     Active Substance: ASPARAGINASE
     Indication: T-CELL LYMPHOMA
     Dosage: 11200 MILLIGRAM
     Route: 041
     Dates: start: 20190730, end: 20190730
  2. GEMCITABINE. [Suspect]
     Active Substance: GEMCITABINE
     Indication: T-CELL LYMPHOMA
     Dosage: 1800 MILLIGRAM
     Route: 041
     Dates: start: 20190729, end: 20190729
  3. METHYLPREDNISOLONE. [Suspect]
     Active Substance: METHYLPREDNISOLONE
     Indication: PREMEDICATION
     Dosage: 40 MILLIGRAM
     Route: 041
     Dates: start: 20190729, end: 20190729
  4. METHOTREXATE MYLAN [Suspect]
     Active Substance: METHOTREXATE SODIUM
     Indication: T-CELL LYMPHOMA
     Dosage: 5700 MILLIGRAM
     Route: 041
     Dates: start: 20190729, end: 20190729

REACTIONS (1)
  - Tonic clonic movements [Recovered/Resolved]

NARRATIVE: CASE EVENT DATE: 20190731
